FAERS Safety Report 8507048-6 (Version None)
Quarter: 2012Q3

REPORT INFORMATION
  Report Type: 
  Country: None (occurrence: None)
  Receive Date: 20120712
  Receipt Date: 20120711
  Transmission Date: 20120928
  Serious: Yes (Hospitalization, Other)
  Sender: FDA-Public Use
  Company Number: US-JNJFOC-20111106650

PATIENT
  Sex: Male

DRUGS (2)
  1. REMICADE [Suspect]
     Indication: ANKYLOSING SPONDYLITIS
     Dosage: 400MG-700MG
     Route: 042
     Dates: end: 20110921
  2. REMICADE [Suspect]
     Route: 042

REACTIONS (5)
  - FUNGAL INFECTION [None]
  - SMALL INTESTINAL OBSTRUCTION [None]
  - INTESTINAL ULCER [None]
  - COLON NEOPLASM [None]
  - INTESTINAL OPERATION [None]
